FAERS Safety Report 23012812 (Version 2)
Quarter: 2023Q4

REPORT INFORMATION
  Report Type: Spontaneous
  Country: US (occurrence: US)
  Receive Date: 20230930
  Receipt Date: 20231026
  Transmission Date: 20240110
  Serious: No
  Sender: FDA-Public Use
  Company Number: US-SA-SAC20230922000899

PATIENT
  Sex: Male

DRUGS (1)
  1. DUPIXENT [Suspect]
     Active Substance: DUPILUMAB
     Indication: Dermatitis atopic
     Dosage: 300 MG, QOW
     Route: 058

REACTIONS (6)
  - Eczema [Recovering/Resolving]
  - COVID-19 [Unknown]
  - Paranasal sinus discomfort [Unknown]
  - Respiratory tract congestion [Unknown]
  - Brain fog [Unknown]
  - Pruritus [Unknown]
